FAERS Safety Report 8179603-7 (Version None)
Quarter: 2012Q1

REPORT INFORMATION
  Report Type: 
  Country: None (occurrence: None)
  Receive Date: 20120302
  Receipt Date: 20120224
  Transmission Date: 20120608
  Serious: Yes (Hospitalization, Other)
  Sender: FDA-Public Use
  Company Number: US-BAYER-2012-011695

PATIENT
  Age: 52 Year
  Sex: Female

DRUGS (6)
  1. LEVOXYL [Concomitant]
     Indication: HOT FLUSH
  2. THYROID [Concomitant]
  3. DROSPIRENONE AND ETHINYL ESTRADIOL [Suspect]
     Indication: PRODUCT USED FOR UNKNOWN INDICATION
  4. YASMIN [Suspect]
     Indication: PRODUCT USED FOR UNKNOWN INDICATION
  5. LEVOTHYROXINE SODIUM [Concomitant]
     Dosage: 88 MCG/24HR, QD
  6. LEVOXYL [Concomitant]
     Indication: MENOPAUSE

REACTIONS (7)
  - PULMONARY EMBOLISM [None]
  - DYSPNOEA EXERTIONAL [None]
  - INJURY [None]
  - PULMONARY INFARCTION [None]
  - PLEURAL EFFUSION [None]
  - DYSPNOEA [None]
  - PAIN [None]
